FAERS Safety Report 5069221-1 (Version None)
Quarter: 2006Q3

REPORT INFORMATION
  Report Type: 
  Country: None (occurrence: None)
  Receive Date: 20060803
  Receipt Date: 20060724
  Transmission Date: 20061208
  Serious: Yes (Hospitalization)
  Sender: FDA-Public Use
  Company Number: CZ-JNJFOC-20050305705

PATIENT
  Sex: Female

DRUGS (7)
  1. REMICADE [Suspect]
     Indication: RHEUMATOID ARTHRITIS
     Route: 042
  2. MEDROL [Concomitant]
     Route: 065
  3. METHOTREXATE [Concomitant]
     Route: 065
  4. COXTRAL [Concomitant]
     Route: 065
  5. ACIDUM FOLICUM [Concomitant]
     Route: 065
  6. SIMEPAR [Concomitant]
     Route: 065
  7. QUAMATEL [Concomitant]
     Route: 065

REACTIONS (2)
  - C-REACTIVE PROTEIN INCREASED [None]
  - URINARY TRACT INFECTION [None]
